FAERS Safety Report 10279662 (Version 1)
Quarter: 2014Q3

REPORT INFORMATION
  Report Type: Spontaneous
  Country: US (occurrence: None)
  Receive Date: 20140702
  Receipt Date: 20140702
  Transmission Date: 20150326
  Serious: Yes (Hospitalization)
  Sender: FDA-Public Use
  Company Number: None

PATIENT
  Sex: Female

DRUGS (1)
  1. STELARA [Suspect]
     Active Substance: USTEKINUMAB
     Indication: PSORIASIS
     Dosage: 45MG  AT WEEK 0, WEEK 4, THEN EVERY 3  SUBCUTANEOUS
     Route: 058
     Dates: start: 20140304, end: 20140402

REACTIONS (1)
  - Adverse event [None]
